FAERS Safety Report 14455883 (Version 2)
Quarter: 2018Q1

REPORT INFORMATION
  Report Type: Spontaneous
  Country: US (occurrence: US)
  Receive Date: 20180130
  Receipt Date: 20180209
  Transmission Date: 20180509
  Serious: Yes (Hospitalization)
  Sender: FDA-Public Use
  Company Number: US-SUN PHARMACEUTICAL INDUSTRIES LTD-2018US-161226

PATIENT
  Age: 4 Month
  Sex: Male

DRUGS (2)
  1. FLECAINIDE ACETATE. [Suspect]
     Active Substance: FLECAINIDE ACETATE
     Indication: ATRIAL TACHYCARDIA
     Dosage: 6 MG/KG, DAILY
     Route: 065
  2. PROPRANOLOL [Concomitant]
     Active Substance: PROPRANOLOL HYDROCHLORIDE
     Indication: ATRIAL TACHYCARDIA
     Dosage: 3 MG/KG, DAILY
     Route: 065

REACTIONS (4)
  - Defect conduction intraventricular [Recovered/Resolved]
  - Toxicity to various agents [Unknown]
  - Atrioventricular block first degree [Recovered/Resolved]
  - Supraventricular extrasystoles [Recovered/Resolved]
